FAERS Safety Report 5077869-3 (Version None)
Quarter: 2006Q3

REPORT INFORMATION
  Report Type: 
  Country: None (occurrence: None)
  Receive Date: 20060720
  Receipt Date: 20051221
  Transmission Date: 20061208
  Serious: Yes (Death)
  Sender: FDA-Public Use
  Company Number: 2006MP000045

PATIENT
  Age: 66 Year
  Sex: Male

DRUGS (2)
  1. AGGRASTAT [Suspect]
     Indication: CEREBROVASCULAR ACCIDENT
     Dosage: SEE IMAGE
     Route: 042
  2. HEPARIN [Suspect]
     Indication: CEREBROVASCULAR ACCIDENT
     Dosage: 1000 IU/HR;IV
     Route: 042

REACTIONS (1)
  - SUBARACHNOID HAEMORRHAGE [None]
